FAERS Safety Report 4794448-3 (Version None)
Quarter: 2005Q4

REPORT INFORMATION
  Report Type: 
  Country: None (occurrence: None)
  Receive Date: 20051011
  Receipt Date: 20050929
  Transmission Date: 20060501
  Serious: Yes (Other)
  Sender: FDA-Public Use
  Company Number: US-BRISTOL-MYERS SQUIBB COMPANY-13132303

PATIENT

DRUGS (1)
  1. REYATAZ [Suspect]

REACTIONS (1)
  - CHOLELITHIASIS [None]
